FAERS Safety Report 12638649 (Version 2)
Quarter: 2016Q3

REPORT INFORMATION
  Report Type: Spontaneous
  Country: US (occurrence: US)
  Receive Date: 20160809
  Receipt Date: 20160915
  Transmission Date: 20161109
  Serious: Yes (Other)
  Sender: FDA-Public Use
  Company Number: US-TEVA-683671USA

PATIENT
  Age: 64 Year
  Sex: Female

DRUGS (7)
  1. PIPERACILLIN [Suspect]
     Active Substance: PIPERACILLIN
  2. MOXIFLOXACIN. [Concomitant]
     Active Substance: MOXIFLOXACIN
  3. CIPROFLOXACIN. [Suspect]
     Active Substance: CIPROFLOXACIN
     Indication: ENTEROBACTER INFECTION
     Route: 065
  4. PIPERACILLIN [Suspect]
     Active Substance: PIPERACILLIN
     Indication: ENTEROBACTER INFECTION
  5. AZITHROMYCIN ANHYDROUS. [Concomitant]
     Active Substance: AZITHROMYCIN ANHYDROUS
  6. VANCOMYCIN [Concomitant]
     Active Substance: VANCOMYCIN
  7. CEFTRIAXONE. [Concomitant]
     Active Substance: CEFTRIAXONE

REACTIONS (3)
  - Factor V inhibition [Recovered/Resolved]
  - Embolism venous [Recovered/Resolved]
  - Factor V deficiency [Recovered/Resolved]
